FAERS Safety Report 22043797 (Version 1)
Quarter: 2023Q1

REPORT INFORMATION
  Report Type: Spontaneous
  Country: US (occurrence: US)
  Receive Date: 20230228
  Receipt Date: 20230228
  Transmission Date: 20230418
  Serious: No
  Sender: FDA-Public Use
  Company Number: US-SA-SAC20230224000720

PATIENT
  Age: 39 Year
  Sex: Male
  Weight: 106.5 kg

DRUGS (2)
  1. DUPIXENT [Suspect]
     Active Substance: DUPILUMAB
     Indication: Dermatitis atopic
     Dosage: 300 MG, QOW
     Route: 058
     Dates: start: 2018
  2. NEXIUM I.V. [Concomitant]
     Active Substance: ESOMEPRAZOLE SODIUM
     Dosage: UNK

REACTIONS (4)
  - Rash [Unknown]
  - Therapeutic response shortened [Unknown]
  - Erythema [Unknown]
  - Dry skin [Unknown]

NARRATIVE: CASE EVENT DATE: 20180101
